FAERS Safety Report 14204689 (Version 2)
Quarter: 2020Q1

REPORT INFORMATION
  Report Type: Report from Study
  Country: AU (occurrence: AU)
  Receive Date: 20171120
  Receipt Date: 20200306
  Transmission Date: 20200409
  Serious: Yes (Other)
  Sender: FDA-Public Use
  Company Number: AU-GLAXOSMITHKLINE-AU2017GSK172112

PATIENT
  Age: 38 Year
  Sex: Female

DRUGS (1)
  1. ACITRETIN. [Suspect]
     Active Substance: ACITRETIN
     Indication: PUSTULAR PSORIASIS
     Dosage: UNK

REACTIONS (4)
  - Contraindicated product prescribed [Unknown]
  - Off label use [Unknown]
  - Abortion induced [Unknown]
  - Maternal exposure during pregnancy [Unknown]
